FAERS Safety Report 10560380 (Version 1)
Quarter: 2014Q4

REPORT INFORMATION
  Report Type: Spontaneous
  Country: IN (occurrence: IN)
  Receive Date: 20141103
  Receipt Date: 20141103
  Transmission Date: 20150529
  Serious: Yes (Other)
  Sender: FDA-Public Use
  Company Number: IN-PFIZER INC-2014303019

PATIENT
  Age: 50 Year
  Sex: Male

DRUGS (1)
  1. MINIPRESS XL [Suspect]
     Active Substance: PRAZOSIN HYDROCHLORIDE
     Indication: HYPERTENSION
     Dosage: 2.5 MG, 1X/DAY
     Route: 048
     Dates: start: 20141022, end: 20141024

REACTIONS (2)
  - Angioedema [Unknown]
  - Urticaria [Unknown]
